FAERS Safety Report 15298158 (Version 2)
Quarter: 2018Q3

REPORT INFORMATION
  Report Type: Report from Study
  Country: BE (occurrence: BE)
  Receive Date: 20180820
  Receipt Date: 20180914
  Transmission Date: 20181010
  Serious: Yes (Other)
  Sender: FDA-Public Use
  Company Number: BE-PFIZER INC-2017535937

PATIENT
  Age: 70 Year
  Sex: Female
  Weight: 61.5 kg

DRUGS (9)
  1. BEVACIZUMAB. [Suspect]
     Active Substance: BEVACIZUMAB
     Dosage: 1027 MG, EVERY 3 WEEKS
     Route: 042
     Dates: start: 20180712
  2. VOLTAREN [Concomitant]
     Active Substance: DICLOFENAC SODIUM
     Dosage: 50 MG, 1X/DAY
     Route: 048
     Dates: start: 20171109
  3. BEVACIZUMAB. [Suspect]
     Active Substance: BEVACIZUMAB
     Indication: OVARIAN CANCER
     Dosage: 960 MG, EVERY 3 WEEKS
     Route: 042
     Dates: start: 20171102
  4. PACLITAXEL. [Suspect]
     Active Substance: PACLITAXEL
     Indication: OVARIAN CANCER
     Dosage: 132 MG/M2, WEEKLY
     Route: 042
     Dates: start: 20171102
  5. BEFACT /00527001/ [Concomitant]
     Active Substance: CYANOCOBALAMIN\PYRIDOXINE\THIAMINE
     Dosage: UNK
     Route: 065
     Dates: start: 20180211
  6. BEVACIZUMAB. [Suspect]
     Active Substance: BEVACIZUMAB
     Dosage: 975 MG, UNK
     Route: 042
     Dates: start: 20171123
  7. DAFALGAN [Concomitant]
     Active Substance: ACETAMINOPHEN
     Dosage: 1 DF, AS NEEDED
     Route: 065
     Dates: start: 20180131
  8. PACLITAXEL. [Suspect]
     Active Substance: PACLITAXEL
     Dosage: 133.6 MG/M2, WEEKLY
     Route: 042
     Dates: start: 20171123, end: 20180412
  9. CARBOPLATIN. [Suspect]
     Active Substance: CARBOPLATIN
     Indication: OVARIAN CANCER
     Dosage: 6 AUC, EVERY 3 WEEKS
     Route: 042
     Dates: start: 20171102, end: 20180329

REACTIONS (11)
  - Chest pain [Not Recovered/Not Resolved]
  - Ecchymosis [Recovered/Resolved]
  - Fall [Unknown]
  - Suture insertion [Recovered/Resolved]
  - Fatigue [Recovered/Resolved]
  - Hypertension [Unknown]
  - Back pain [Not Recovered/Not Resolved]
  - Oedema peripheral [Recovered/Resolved]
  - Aphthous ulcer [Recovered/Resolved]
  - Neuropathy peripheral [Not Recovered/Not Resolved]
  - Anal pruritus [Recovered/Resolved]

NARRATIVE: CASE EVENT DATE: 20171102
